FAERS Safety Report 9803488 (Version 2)
Quarter: 2014Q1

REPORT INFORMATION
  Report Type: Spontaneous
  Country: AU (occurrence: AU)
  Receive Date: 20140108
  Receipt Date: 20140130
  Transmission Date: 20141002
  Serious: Yes (Death, Hospitalization)
  Sender: FDA-Public Use
  Company Number: AU-B.I. PHARMACEUTICALS,INC./RIDGEFIELD-2014-BI-00589AU

PATIENT
  Age: 69 Year
  Sex: Male
  Weight: 80 kg

DRUGS (7)
  1. PRADAXA [Suspect]
     Indication: ATRIAL FIBRILLATION
     Dosage: 300 MG
     Dates: start: 201110, end: 20121022
  2. CLOPIDOGREL [Suspect]
     Dosage: 75 MG
     Dates: start: 199908
  3. ALLOPURINOL [Concomitant]
  4. CANDESARTAN [Concomitant]
  5. ATENOLOL [Concomitant]
  6. EZETIMIBE/SIMVASTATIN [Concomitant]
  7. SITAGLIPTIN/METFORMIN [Concomitant]

REACTIONS (2)
  - Respiratory arrest [Fatal]
  - Haemorrhagic stroke [Fatal]
